FAERS Safety Report 9521602 (Version 1)
Quarter: 2013Q1

REPORT INFORMATION
  Report Type: Spontaneous
  Country: US (occurrence: None)
  Receive Date: 20130305
  Receipt Date: 20130305
  Transmission Date: 20140127
  Serious: Yes (Other)
  Sender: FDA-Public Use
  Company Number: 163-21880-12022859

PATIENT
  Age: 70 Year
  Sex: Female

DRUGS (6)
  1. REVLIMID [Suspect]
     Indication: PLASMA CELL MYELOMA
     Dosage: 5 MG, DAILY X 21/28 DAYS, PO
     Route: 048
     Dates: start: 200806, end: 200909
  2. LEVOTHYROXINE (LEVOTHYROXINE) (UNKNOWN) [Concomitant]
  3. ACYCLOVIR (ACICLOVIR) (UNKNOWN) [Concomitant]
  4. IBUPROFEN (IBUPROFEN) (UNKNOWN) [Concomitant]
  5. FAMOTIDINE (FAMOTIDINE) (UNKNOWN) [Concomitant]
  6. PREDNISONE (PREDNISONE) (UNKNOWN) [Concomitant]

REACTIONS (1)
  - Plasmacytoma [None]
